FAERS Safety Report 8831107 (Version 3)
Quarter: 2012Q4

REPORT INFORMATION
  Report Type: 
  Country: IN (occurrence: US)
  Receive Date: 20121008
  Receipt Date: 20121105
  Transmission Date: 20130627
  Serious: No
  Sender: FDA-Public Use
  Company Number: US-BAYER-2012-102162

PATIENT
  Age: 57 Year
  Sex: Female

DRUGS (4)
  1. CLIMARA [Suspect]
     Dosage: 0.025 mg, QD
     Route: 062
     Dates: start: 201204
  2. SYNTHROID [Concomitant]
     Dosage: 225 mg, QD
  3. PROGESTERONE [Concomitant]
     Dosage: 200 mg, UNK
  4. PRILOSEC [Concomitant]
     Dosage: 20 mg, UNK

REACTIONS (3)
  - Pruritus [Recovered/Resolved]
  - Skin irritation [None]
  - Product adhesion issue [None]
